FAERS Safety Report 17444789 (Version 1)
Quarter: 2020Q1

REPORT INFORMATION
  Report Type: Spontaneous
  Country: FR (occurrence: FR)
  Receive Date: 20200221
  Receipt Date: 20200221
  Transmission Date: 20200409
  Serious: Yes (Hospitalization)
  Sender: FDA-Public Use
  Company Number: FR-TEVA-2020-FR-1189191

PATIENT
  Age: 56 Year
  Sex: Female
  Weight: 73 kg

DRUGS (6)
  1. HYDROCHLOROTHIAZIDE. [Suspect]
     Active Substance: HYDROCHLOROTHIAZIDE
     Dosage: UNKNOWN
     Route: 048
  2. BISOPROLOL (FUMARATE DE) [Suspect]
     Active Substance: BISOPROLOL FUMARATE
     Dosage: UNKNOWN
     Route: 048
  3. ZELITREX 500 MG, COMPRIM? ENROB? [Suspect]
     Active Substance: VALACYCLOVIR HYDROCHLORIDE
     Indication: HERPES SIMPLEX
     Route: 048
     Dates: start: 2016
  4. STREPSILS (AMYLMETACRESOL/DICHLOROBENZYL ALCOHOL) [Suspect]
     Active Substance: AMYLMETACRESOL\DICHLOROBENZYL ALCOHOL
     Indication: RHINITIS
     Dosage: UNKNOWN
     Route: 048
     Dates: start: 20190521, end: 20190523
  5. EFFERALGAN [Suspect]
     Active Substance: ACETAMINOPHEN
     Indication: RHINITIS
     Dosage: UNKNOWN
     Route: 048
     Dates: start: 20190521, end: 20190523
  6. HEXASPRAY, COLLUTOIRE EN FLACON PRESSURIS? [Suspect]
     Active Substance: BICLOTYMOL
     Indication: RHINITIS
     Dosage: UNKNOWN
     Route: 049
     Dates: start: 20190521, end: 20190523

REACTIONS (1)
  - Acute generalised exanthematous pustulosis [Recovered/Resolved]

NARRATIVE: CASE EVENT DATE: 20190526
